FAERS Safety Report 18935714 (Version 2)
Quarter: 2021Q1

REPORT INFORMATION
  Report Type: Spontaneous
  Country: GR (occurrence: GR)
  Receive Date: 20210224
  Receipt Date: 20210315
  Transmission Date: 20210420
  Serious: No
  Sender: FDA-Public Use
  Company Number: GR-SA-2021SA057958

PATIENT
  Age: 50 Year
  Sex: Female

DRUGS (4)
  1. DEPON [Concomitant]
     Active Substance: ACETAMINOPHEN
     Dosage: 0.5 DF
  2. XOZAL [Concomitant]
     Active Substance: LEVOCETIRIZINE
     Indication: IDIOPATHIC URTICARIA
  3. SALOSPIR [Concomitant]
     Active Substance: ASPIRIN
     Dosage: 0.5 DF
  4. APROVEL [Suspect]
     Active Substance: IRBESARTAN
     Dosage: 75 MG
     Dates: start: 2018

REACTIONS (10)
  - Erythema [Recovering/Resolving]
  - Scratch [Recovering/Resolving]
  - Intentional product misuse [Unknown]
  - Anxiety [Recovering/Resolving]
  - Off label use [Unknown]
  - Pruritus [Recovering/Resolving]
  - Dermatitis [Recovering/Resolving]
  - Blood pressure increased [Recovering/Resolving]
  - Rash [Recovering/Resolving]
  - Acne [Recovering/Resolving]

NARRATIVE: CASE EVENT DATE: 202102
